APPROVED DRUG PRODUCT: IBUPROFEN
Active Ingredient: IBUPROFEN
Strength: 100MG/5ML
Dosage Form/Route: SUSPENSION;ORAL
Application: A200457 | Product #001
Applicant: ARISE PHARMACEUTICALS LLC
Approved: Aug 18, 2011 | RLD: No | RS: No | Type: DISCN